FAERS Safety Report 15250847 (Version 2)
Quarter: 2018Q3

REPORT INFORMATION
  Report Type: Spontaneous
  Country: NL (occurrence: NL)
  Receive Date: 20180807
  Receipt Date: 20180820
  Transmission Date: 20181010
  Serious: Yes (Other)
  Sender: FDA-Public Use
  Company Number: NL-PFIZER INC-HQ1797404OCT2000

PATIENT
  Age: 48 Year
  Sex: Female

DRUGS (3)
  1. CYCLOPHOSPHAMIDE. [Suspect]
     Active Substance: CYCLOPHOSPHAMIDE
     Indication: FALLOPIAN TUBE CANCER
     Dosage: 1500 MG/M2, 4X CYC
  2. CARBOPLATIN. [Suspect]
     Active Substance: CARBOPLATIN
     Indication: FALLOPIAN TUBE CANCER
     Dosage: 400 MG/M2, 4X/CYC
  3. THIOTEPA. [Suspect]
     Active Substance: THIOTEPA
     Indication: FALLOPIAN TUBE CANCER
     Dosage: 60 MG/M2, 2X/DAY
     Route: 042

REACTIONS (6)
  - Hypertension [Unknown]
  - Haemolytic uraemic syndrome [Recovered/Resolved]
  - Renal failure [Unknown]
  - Bacteraemia [Recovered/Resolved]
  - Microangiopathic haemolytic anaemia [Unknown]
  - Hepatic enzyme increased [Unknown]
